FAERS Safety Report 13153435 (Version 2)
Quarter: 2017Q1

REPORT INFORMATION
  Report Type: Spontaneous
  Country: JP (occurrence: JP)
  Receive Date: 20170126
  Receipt Date: 20170207
  Transmission Date: 20170428
  Serious: Yes (Death)
  Sender: FDA-Public Use
  Company Number: JP-ASTRAZENECA-2017SE03304

PATIENT
  Age: 73 Year
  Sex: Male

DRUGS (5)
  1. BAYASPIRIN [Concomitant]
     Active Substance: ASPIRIN
     Route: 048
     Dates: start: 2010, end: 201610
  2. PARIET [Concomitant]
     Active Substance: RABEPRAZOLE SODIUM
     Route: 048
     Dates: start: 2010, end: 201610
  3. ANTIPYRETICS, ANALGESICS AND ANTI-INFLAMMATORY AGENTS [Concomitant]
     Active Substance: UNSPECIFIED INGREDIENT
     Route: 048
     Dates: start: 201609, end: 201610
  4. SYMBICORT [Suspect]
     Active Substance: BUDESONIDE\FORMOTEROL FUMARATE DIHYDRATE
     Indication: ASTHMA
     Dosage: 2 DF TWO TIMES A DAY WITHOUT RELIEVER DOSE
     Route: 055
     Dates: start: 201609, end: 201609
  5. AMBROXOL HYDROCHLORIDE [Concomitant]
     Active Substance: AMBROXOL HYDROCHLORIDE
     Route: 048
     Dates: start: 201608, end: 201610

REACTIONS (2)
  - Death [Fatal]
  - Oral candidiasis [Recovered/Resolved]

NARRATIVE: CASE EVENT DATE: 201609
